FAERS Safety Report 4704305-6 (Version None)
Quarter: 2005Q2

REPORT INFORMATION
  Report Type: 
  Country: None (occurrence: None)
  Receive Date: 20050630
  Receipt Date: 20041028
  Transmission Date: 20051028
  Serious: No
  Sender: FDA-Public Use
  Company Number: 200413364JP

PATIENT
  Age: 58 Year
  Sex: Female

DRUGS (2)
  1. LANTUS [Suspect]
     Route: 058
     Dates: start: 20041005, end: 20041016
  2. OPTIPEN (INSULIN PUMP) [Suspect]

REACTIONS (1)
  - RHINITIS ALLERGIC [None]
